FAERS Safety Report 12805160 (Version 3)
Quarter: 2017Q1

REPORT INFORMATION
  Report Type: Report from Study
  Country: BE (occurrence: BE)
  Receive Date: 20161004
  Receipt Date: 20170106
  Transmission Date: 20170428
  Serious: Yes (Hospitalization, Disabling, Other)
  Sender: FDA-Public Use
  Company Number: BE-BRISTOL-MYERS SQUIBB COMPANY-BMS-2016-074324

PATIENT
  Age: 62 Year
  Sex: Female

DRUGS (1)
  1. NIVOLUMAB [Suspect]
     Active Substance: NIVOLUMAB
     Indication: NON-SMALL CELL LUNG CANCER
     Dosage: 3 MG/KG, 2 TIMES/WK
     Route: 065
     Dates: start: 20160320, end: 20160902

REACTIONS (6)
  - Asthenia [Unknown]
  - Radiotherapy [Recovered/Resolved with Sequelae]
  - Encephalitis [Recovered/Resolved with Sequelae]
  - Confusional state [Unknown]
  - Brain injury [Recovered/Resolved with Sequelae]
  - Therapeutic response decreased [Unknown]

NARRATIVE: CASE EVENT DATE: 20160902
